FAERS Safety Report 16197804 (Version 1)
Quarter: 2019Q2

REPORT INFORMATION
  Report Type: Spontaneous
  Country: FR (occurrence: FR)
  Receive Date: 20190415
  Receipt Date: 20190415
  Transmission Date: 20190711
  Serious: Yes (Hospitalization, Other)
  Sender: FDA-Public Use
  Company Number: FR-MYLANLABS-2019M1033715

PATIENT
  Age: 92 Year
  Sex: Female
  Weight: 70 kg

DRUGS (6)
  1. LASILIX FAIBLE [Suspect]
     Active Substance: FUROSEMIDE
     Indication: PRODUCT USED FOR UNKNOWN INDICATION
     Dosage: 7 DOSAGE FORM, TOTAL
     Route: 048
     Dates: start: 20180814, end: 20180814
  2. XARELTO [Suspect]
     Active Substance: RIVAROXABAN
     Indication: PRODUCT USED FOR UNKNOWN INDICATION
     Dosage: 7 DOSAGE FORM, TOTAL
     Route: 048
     Dates: start: 20180814, end: 20180814
  3. RISPERIDONE. [Suspect]
     Active Substance: RISPERIDONE
     Indication: PRODUCT USED FOR UNKNOWN INDICATION
     Dosage: 21 MILLIGRAM, TOTAL
     Route: 048
     Dates: start: 20180814, end: 20180814
  4. DEPAKOTE [Suspect]
     Active Substance: DIVALPROEX SODIUM
     Indication: PRODUCT USED FOR UNKNOWN INDICATION
     Dosage: 14 DOSAGE FORM, TOTAL
     Route: 048
     Dates: start: 20180814, end: 20180814
  5. HEMIGOXINE NATIVELLE [Suspect]
     Active Substance: DIGOXIN
     Indication: PRODUCT USED FOR UNKNOWN INDICATION
     Dosage: 7 DOSAGE FORM, TOTAL
     Route: 048
     Dates: start: 20180814, end: 20180814
  6. DONORMYL                           /00334102/ [Suspect]
     Active Substance: DOXYLAMINE SUCCINATE
     Indication: PRODUCT USED FOR UNKNOWN INDICATION
     Dosage: 7 DOSAGE FORM, TOTAL
     Route: 048
     Dates: start: 20180814, end: 20180814

REACTIONS (5)
  - Prothrombin time shortened [Recovered/Resolved]
  - Poisoning deliberate [Unknown]
  - Acute kidney injury [Recovered/Resolved]
  - Somnolence [Recovered/Resolved]
  - Hypotension [Recovered/Resolved]

NARRATIVE: CASE EVENT DATE: 201808
